FAERS Safety Report 8026412-5 (Version None)
Quarter: 2012Q1

REPORT INFORMATION
  Report Type: 
  Country: None (occurrence: None)
  Receive Date: 20120105
  Receipt Date: 20120104
  Transmission Date: 20120608
  Serious: Yes (Life-Threatening, Hospitalization)
  Sender: FDA-Public Use
  Company Number: US-MERCK-1201USA00306

PATIENT
  Age: 66 Year
  Sex: Male

DRUGS (18)
  1. REVLIMID [Suspect]
     Indication: MULTIPLE MYELOMA
     Route: 048
     Dates: start: 20110702, end: 20110816
  2. PROVENTIL GENTLEHALER [Concomitant]
     Route: 065
  3. DECADRON [Suspect]
     Indication: MULTIPLE MYELOMA
     Route: 048
     Dates: start: 20110702
  4. AMBIEN [Concomitant]
     Route: 048
  5. ASPIRIN [Concomitant]
     Route: 065
  6. SYMBICORT [Concomitant]
     Route: 065
  7. CHOLECALCIFEROL [Concomitant]
     Route: 065
  8. GLUCOSAMINE [Concomitant]
     Route: 065
  9. SYNTHROID [Concomitant]
     Indication: HYPOTHYROIDISM
     Route: 065
  10. ACIPHEX [Concomitant]
     Indication: GASTROOESOPHAGEAL REFLUX DISEASE
     Route: 065
  11. IRON (UNSPECIFIED) [Concomitant]
     Indication: MINERAL SUPPLEMENTATION
     Route: 065
  12. CENTRUM SILVER [Concomitant]
     Route: 065
  13. REVLIMID [Suspect]
     Route: 048
     Dates: start: 20110913
  14. HALOG [Concomitant]
     Route: 065
  15. OMEGA-3 MARINE TRIGLYCERIDES [Concomitant]
     Route: 065
  16. PROVENTIL [Concomitant]
     Route: 065
  17. ZYRTEC [Concomitant]
     Route: 048
  18. VITAMIN B COMPLEX [Concomitant]
     Route: 065

REACTIONS (2)
  - RASH [None]
  - DIVERTICULAR PERFORATION [None]
